FAERS Safety Report 5885237-7 (Version None)
Quarter: 2008Q3

REPORT INFORMATION
  Report Type: 
  Country: None (occurrence: None)
  Receive Date: 20080916
  Receipt Date: 20080902
  Transmission Date: 20090109
  Serious: Yes (Other)
  Sender: FDA-Public Use
  Company Number: US-PFIZER INC-2007087590

PATIENT
  Sex: Female
  Weight: 61.2 kg

DRUGS (2)
  1. DILANTIN [Suspect]
     Indication: CONVULSION
     Route: 048
     Dates: start: 19770101
  2. DILANTIN [Suspect]
     Indication: CONVULSION
     Dates: start: 20080201

REACTIONS (13)
  - ABDOMINAL PAIN UPPER [None]
  - ACTIVITIES OF DAILY LIVING IMPAIRED [None]
  - AURA [None]
  - CONVULSION [None]
  - DISORIENTATION [None]
  - EMOTIONAL DISTRESS [None]
  - FEELING ABNORMAL [None]
  - GLAUCOMA [None]
  - PAIN [None]
  - PSYCHOTIC DISORDER [None]
  - ROAD TRAFFIC ACCIDENT [None]
  - THIRST [None]
  - VISION BLURRED [None]
